FAERS Safety Report 10762485 (Version 1)
Quarter: 2015Q1

REPORT INFORMATION
  Report Type: Spontaneous
  Country: US (occurrence: None)
  Receive Date: 20150129
  Receipt Date: 20150129
  Transmission Date: 20150721
  Serious: Yes (Hospitalization)
  Sender: FDA-Public Use
  Company Number: 115436

PATIENT
  Age: 25 Year
  Sex: Female

DRUGS (1)
  1. KEPPRA XR [Suspect]
     Active Substance: LEVETIRACETAM
     Indication: EPILEPSY
     Route: 048
     Dates: start: 2010, end: 2014

REACTIONS (4)
  - Pregnancy [None]
  - Off label use [None]
  - Seizure [None]
  - Overdose [None]

NARRATIVE: CASE EVENT DATE: 201312
